FAERS Safety Report 4665818-9 (Version None)
Quarter: 2005Q2

REPORT INFORMATION
  Report Type: 
  Country: None (occurrence: None)
  Receive Date: 20050519
  Receipt Date: 20050223
  Transmission Date: 20051028
  Serious: No
  Sender: FDA-Public Use
  Company Number: US-GLAXOSMITHKLINE-A0546947A

PATIENT
  Age: 72 Year
  Sex: Male

DRUGS (7)
  1. AVODART [Suspect]
     Indication: BENIGN PROSTATIC HYPERPLASIA
     Dosage: .5MG PER DAY
     Route: 048
     Dates: start: 20030301
  2. FLOMAX [Concomitant]
  3. VITAMIN E [Concomitant]
  4. B-12 [Concomitant]
  5. ZINC [Concomitant]
  6. VIT C TAB [Concomitant]
  7. SELENIUM TRACE METAL ADDITIVE [Concomitant]

REACTIONS (2)
  - BREAST TENDERNESS [None]
  - GYNAECOMASTIA [None]
